FAERS Safety Report 10131728 (Version 1)
Quarter: 2014Q2

REPORT INFORMATION
  Report Type: Spontaneous
  Country: BR (occurrence: BR)
  Receive Date: 20140428
  Receipt Date: 20140428
  Transmission Date: 20141212
  Serious: Yes (Hospitalization)
  Sender: FDA-Public Use
  Company Number: BR-PFIZER INC-2014114770

PATIENT
  Age: 61 Year
  Sex: Female

DRUGS (2)
  1. LYRICA [Suspect]
     Indication: PAIN
     Dosage: UNK
     Route: 048
     Dates: start: 2012
  2. TYLEX [Concomitant]
     Indication: PAIN
     Dosage: 1 TABLET OF UNSPECIFIED DOSAGE, 3X/DAY (EVERY 8 HOURS)
     Dates: start: 2012

REACTIONS (2)
  - Intervertebral disc protrusion [Unknown]
  - Pain [Unknown]
